FAERS Safety Report 6162570-5 (Version None)
Quarter: 2009Q2

REPORT INFORMATION
  Report Type: 
  Country: None (occurrence: None)
  Receive Date: 20090421
  Receipt Date: 20080528
  Transmission Date: 20091009
  Serious: No
  Sender: FDA-Public Use
  Company Number: US-ASTRAZENECA-2003UW08098

PATIENT
  Age: 77 Year
  Sex: Female
  Weight: 69.5 kg

DRUGS (5)
  1. ARIMIDEX [Suspect]
     Indication: BREAST CANCER
     Dosage: 1 MG
     Route: 048
     Dates: end: 20080520
  2. LIPITOR [Concomitant]
     Dosage: 10 MG FIVE DAYS PER WEEK
  3. ZOCOR [Concomitant]
  4. VITAMIN D + CALCIUM [Concomitant]
  5. ACTONEL [Concomitant]

REACTIONS (4)
  - HOT FLUSH [None]
  - HYPOTENSION [None]
  - PAIN [None]
  - WEIGHT INCREASED [None]
